FAERS Safety Report 8974303 (Version 2)
Quarter: 2013Q1

REPORT INFORMATION
  Report Type: Spontaneous
  Country: US (occurrence: US)
  Receive Date: 20121219
  Receipt Date: 20130212
  Transmission Date: 20140127
  Serious: Yes (Death, Hospitalization, Other)
  Sender: FDA-Public Use
  Company Number: US-GILEAD-2012-0066407

PATIENT
  Sex: Male

DRUGS (2)
  1. LETAIRIS [Suspect]
     Indication: PULMONARY HYPERTENSION
     Dosage: 10 MG, QD
     Route: 048
     Dates: start: 20120725, end: 20121212
  2. LETAIRIS [Suspect]
     Indication: HEPATIC CIRRHOSIS

REACTIONS (3)
  - Hepatic encephalopathy [Fatal]
  - Chronic hepatic failure [Unknown]
  - Hepatic function abnormal [Unknown]
